FAERS Safety Report 4899426-1 (Version None)
Quarter: 2006Q1

REPORT INFORMATION
  Report Type: 
  Country: None (occurrence: None)
  Receive Date: 20060131
  Receipt Date: 20060117
  Transmission Date: 20060701
  Serious: Yes (Hospitalization)
  Sender: FDA-Public Use
  Company Number: DSA_27448_2005

PATIENT
  Age: 95 Year
  Sex: Female

DRUGS (4)
  1. TEMESTA [Suspect]
     Dosage: 1 MG Q DAY PO
     Route: 048
     Dates: end: 20050808
  2. TEMESTA [Suspect]
     Dosage: 0.5 MG Q DAY PO
     Route: 048
     Dates: start: 20050811
  3. INIPOMP [Suspect]
     Indication: GASTRIC ULCER
     Dosage: DF IV
     Route: 042
     Dates: start: 20050809, end: 20050811
  4. INIPOMP [Suspect]
     Indication: GASTRIC ULCER
     Dosage: 80 MG Q DAY PO
     Route: 048
     Dates: start: 20050811

REACTIONS (6)
  - CONFUSIONAL STATE [None]
  - DRUG WITHDRAWAL SYNDROME [None]
  - GASTRIC ULCER [None]
  - GASTROINTESTINAL HAEMORRHAGE [None]
  - MALAISE [None]
  - OVERDOSE [None]
